FAERS Safety Report 23053167 (Version 1)
Quarter: 2023Q4

REPORT INFORMATION
  Report Type: Spontaneous
  Country: FR (occurrence: FR)
  Receive Date: 20231011
  Receipt Date: 20231011
  Transmission Date: 20240109
  Serious: Yes (Hospitalization)
  Sender: FDA-Public Use
  Company Number: FR-AFSSAPS-NY2023001383

PATIENT
  Age: 37 Year
  Sex: Male
  Weight: 100 kg

DRUGS (3)
  1. IBUPROFEN [Suspect]
     Active Substance: IBUPROFEN
     Indication: Oral pain
     Dosage: 200 MILLIGRAM, 3 TIMES A DAY
     Route: 048
     Dates: start: 20230828, end: 20230831
  2. TIAPROFENIC ACID [Concomitant]
     Active Substance: TIAPROFENIC ACID
     Indication: Oral pain
     Dosage: 200 MILLIGRAM, 3 TIMES A DAY
     Route: 048
     Dates: start: 20230831, end: 20230904
  3. ROXITHROMYCIN [Concomitant]
     Active Substance: ROXITHROMYCIN
     Indication: Oral pain
     Dosage: 1 DOSAGE FORM
     Route: 048
     Dates: start: 20230828, end: 20230902

REACTIONS (1)
  - Abscess oral [Recovered/Resolved]

NARRATIVE: CASE EVENT DATE: 20230831
